FAERS Safety Report 7988143-7 (Version None)
Quarter: 2011Q4

REPORT INFORMATION
  Report Type: 
  Country: None (occurrence: None)
  Receive Date: 20111216
  Receipt Date: 20110620
  Transmission Date: 20120403
  Serious: Yes (Other)
  Sender: FDA-Public Use
  Company Number: US-BRISTOL-MYERS SQUIBB COMPANY-15844087

PATIENT
  Age: 78 Year
  Sex: Female

DRUGS (3)
  1. ABILIFY [Suspect]
     Indication: ANXIETY
  2. ABILIFY [Suspect]
     Indication: DEPRESSION
  3. WELLBUTRIN [Concomitant]

REACTIONS (2)
  - DYSKINESIA [None]
  - SUICIDAL IDEATION [None]
